APPROVED DRUG PRODUCT: VANCOMYCIN HYDROCHLORIDE
Active Ingredient: VANCOMYCIN HYDROCHLORIDE
Strength: EQ 1GM BASE/VIAL
Dosage Form/Route: INJECTABLE;INJECTION
Application: A213059 | Product #003
Applicant: KNACK PHARMACEUTICALS INC
Approved: Feb 15, 2022 | RLD: No | RS: No | Type: DISCN